FAERS Safety Report 8495337-3 (Version None)
Quarter: 2012Q3

REPORT INFORMATION
  Report Type: 
  Country: None (occurrence: None)
  Receive Date: 20120709
  Receipt Date: 20120702
  Transmission Date: 20120928
  Serious: Yes (Hospitalization)
  Sender: FDA-Public Use
  Company Number: US-BAYER-2012-060624

PATIENT
  Age: 48 Year
  Sex: Female

DRUGS (3)
  1. DIOVAN [Concomitant]
  2. IRON [Concomitant]
  3. YAZ [Suspect]
     Dosage: UNK
     Dates: start: 20100501

REACTIONS (3)
  - DEEP VEIN THROMBOSIS [None]
  - INJURY [None]
  - PAIN [None]
